FAERS Safety Report 8110505-8 (Version None)
Quarter: 2012Q1

REPORT INFORMATION
  Report Type: 
  Country: None (occurrence: None)
  Receive Date: 20120202
  Receipt Date: 20120124
  Transmission Date: 20120608
  Serious: Yes (Other)
  Sender: FDA-Public Use
  Company Number: US-ASTRAZENECA-2012SE04786

PATIENT
  Sex: Male

DRUGS (2)
  1. IMITREX [Suspect]
     Route: 065
  2. ZOMIG [Suspect]
     Route: 048

REACTIONS (4)
  - INTERVERTEBRAL DISC DISORDER [None]
  - ABDOMINAL DISCOMFORT [None]
  - EPILEPSY [None]
  - DRUG DOSE OMISSION [None]
